FAERS Safety Report 20210093 (Version 1)
Quarter: 2021Q4

REPORT INFORMATION
  Report Type: Report from Study
  Country: US (occurrence: US)
  Receive Date: 20211221
  Receipt Date: 20211221
  Transmission Date: 20220303
  Serious: Yes (Other)
  Sender: FDA-Public Use
  Company Number: US-BAXALTA-2017BLT004412

PATIENT
  Age: 68 Year
  Sex: Female
  Weight: 68.02 kg

DRUGS (2)
  1. HUMAN IMMUNOGLOBULIN G\HYALURONIDASE RECOMBINANT HUMAN [Suspect]
     Active Substance: HUMAN IMMUNOGLOBULIN G\HYALURONIDASE RECOMBINANT HUMAN
     Indication: Immunodeficiency common variable
     Dosage: 20 GRAM, MONTHLY
     Route: 058
  2. CUVITRU [Suspect]
     Active Substance: HUMAN IMMUNOGLOBULIN G
     Indication: Immunodeficiency common variable
     Dosage: UNK
     Route: 065

REACTIONS (6)
  - Herpes zoster [Recovering/Resolving]
  - Anaphylactic reaction [Unknown]
  - Upper respiratory tract infection [Recovering/Resolving]
  - Pneumonia [Unknown]
  - Nasopharyngitis [Unknown]
  - Inability to afford medication [Recovered/Resolved]

NARRATIVE: CASE EVENT DATE: 20170101
